FAERS Safety Report 13858184 (Version 1)
Quarter: 2017Q3

REPORT INFORMATION
  Report Type: Report from Study
  Country: US (occurrence: US)
  Receive Date: 20170811
  Receipt Date: 20170811
  Transmission Date: 20171127
  Serious: Yes (Hospitalization)
  Sender: FDA-Public Use
  Company Number: US-PFIZER INC-2017332839

PATIENT
  Age: 61 Year
  Sex: Female

DRUGS (1)
  1. TOFACITINIB CITRATE [Suspect]
     Active Substance: TOFACITINIB CITRATE
     Indication: RHEUMATOID ARTHRITIS
     Dosage: UNK UNK, 1X/DAY
     Route: 048
     Dates: start: 20150107

REACTIONS (2)
  - Abdominal hernia obstructive [Recovered/Resolved]
  - Obturator hernia [Recovered/Resolved]

NARRATIVE: CASE EVENT DATE: 20170726
